FAERS Safety Report 24823336 (Version 1)
Quarter: 2025Q1

REPORT INFORMATION
  Report Type: Spontaneous
  Country: US (occurrence: US)
  Receive Date: 20250109
  Receipt Date: 20250109
  Transmission Date: 20250408
  Serious: No
  Sender: ELI LILLY AND COMPANY
  Company Number: US-ELI_LILLY_AND_COMPANY-US202501005289

PATIENT
  Age: 67 Year
  Sex: Male

DRUGS (1)
  1. HUMALOG KWIKPEN [Suspect]
     Active Substance: INSULIN LISPRO
     Indication: Product used for unknown indication
     Route: 058

REACTIONS (5)
  - Diabetic neuropathy [Unknown]
  - Mobility decreased [Unknown]
  - Hypoacusis [Unknown]
  - Blood glucose increased [Unknown]
  - Product dose omission issue [Unknown]
